FAERS Safety Report 7603900-4 (Version None)
Quarter: 2011Q3

REPORT INFORMATION
  Report Type: 
  Country: None (occurrence: None)
  Receive Date: 20110712
  Receipt Date: 20110627
  Transmission Date: 20111222
  Serious: Yes (Other)
  Sender: FDA-Public Use
  Company Number: JP-WATSON-2011-09919

PATIENT
  Age: 85 Year
  Sex: Male

DRUGS (2)
  1. VALPROIC ACID [Suspect]
     Indication: AGGRESSION
     Route: 050
  2. QUETIAPINE [Suspect]
     Indication: AGGRESSION
     Route: 065

REACTIONS (3)
  - SEDATION [None]
  - PANCYTOPENIA [None]
  - DYSPHAGIA [None]
